FAERS Safety Report 9550234 (Version 1)
Quarter: 2013Q3

REPORT INFORMATION
  Report Type: Spontaneous
  Country: US (occurrence: US)
  Receive Date: 20130924
  Receipt Date: 20130924
  Transmission Date: 20140515
  Serious: No
  Sender: FDA-Public Use
  Company Number: US-SANOFI-AVENTIS-2013SA064612

PATIENT
  Age: 47 Year
  Sex: Female
  Weight: 77.56 kg

DRUGS (11)
  1. AUBAGIO [Suspect]
     Indication: MULTIPLE SCLEROSIS
     Route: 048
     Dates: start: 20130516
  2. LANTUS [Concomitant]
     Dosage: DOSE:42 UNIT(S)
     Route: 051
  3. HUMALOG [Concomitant]
     Indication: TYPE 1 DIABETES MELLITUS
     Dosage: 2 UNITS SLIDING SCALE.
     Route: 065
  4. ESCITALOPRAM [Concomitant]
     Indication: DEPRESSION
     Route: 065
     Dates: start: 200402
  5. BENICAR [Concomitant]
     Indication: PROTEIN URINE PRESENT
     Route: 065
  6. PRAVASTATIN [Concomitant]
     Indication: BLOOD CHOLESTEROL
     Route: 065
  7. ESTRADIOL [Concomitant]
     Route: 065
  8. MEDROXYPROGESTERONE [Concomitant]
     Route: 065
  9. BACLOFEN [Concomitant]
     Indication: MUSCLE SPASTICITY
     Route: 065
  10. VITAMIN D [Concomitant]
     Route: 065
  11. GENERAL NUTRIENTS [Concomitant]
     Route: 065

REACTIONS (2)
  - Diarrhoea [Not Recovered/Not Resolved]
  - Alopecia [Unknown]
